FAERS Safety Report 7532454-6 (Version None)
Quarter: 2011Q2

REPORT INFORMATION
  Report Type: 
  Country: None (occurrence: None)
  Receive Date: 20110607
  Receipt Date: 20110607
  Transmission Date: 20111010
  Serious: No
  Sender: FDA-Public Use
  Company Number: None

PATIENT
  Age: 19 Year
  Sex: Female

DRUGS (1)
  1. ZARAH DROSPIR. 3MG/ETH. ESTRADIOL 0.03MG WATSON [Suspect]
     Indication: CONTRACEPTION
     Dosage: 1 TABLET DAILY PO
     Route: 048
     Dates: start: 20110527, end: 20110529

REACTIONS (1)
  - PRODUCT MEASURED POTENCY ISSUE [None]
